FAERS Safety Report 11195697 (Version 1)
Quarter: 2015Q2

REPORT INFORMATION
  Report Type: Spontaneous
  Country: DE (occurrence: DE)
  Receive Date: 20150617
  Receipt Date: 20150617
  Transmission Date: 20150821
  Serious: Yes (Other)
  Sender: FDA-Public Use
  Company Number: DE-SUN PHARMACEUTICAL INDUSTRIES LTD-2015R1-99019

PATIENT
  Age: 75 Year
  Sex: Male

DRUGS (2)
  1. PENICILLIN [Suspect]
     Active Substance: PENICILLIN
     Indication: ERYSIPELAS
     Dosage: UNK
     Route: 042
  2. CLINDAMYCIN [Suspect]
     Active Substance: CLINDAMYCIN\CLINDAMYCIN PHOSPHATE
     Indication: ERYSIPELAS
     Dosage: UNK
     Route: 048

REACTIONS (1)
  - Type IV hypersensitivity reaction [Unknown]
